FAERS Safety Report 15267460 (Version 1)
Quarter: 2018Q3

REPORT INFORMATION
  Report Type: Spontaneous
  Country: US (occurrence: US)
  Receive Date: 20180724
  Receipt Date: 20180724
  Transmission Date: 20181010
  Serious: Yes (Other)
  Sender: FDA-Public Use
  Company Number: None

PATIENT
  Age: 80 Year
  Sex: Female
  Weight: 48.6 kg

DRUGS (3)
  1. LOSART/HCT [Concomitant]
  2. VALSART/HCTZ160/12.5 [Suspect]
     Active Substance: HYDROCHLOROTHIAZIDE\VALSARTAN
     Indication: BLOOD PRESSURE MEASUREMENT
     Dosage: ?          QUANTITY:1 TABLET(S);?
     Route: 048
     Dates: start: 20120404, end: 20180723
  3. METROPROL [Concomitant]

REACTIONS (3)
  - Blood pressure fluctuation [None]
  - Atrial fibrillation [None]
  - Visual impairment [None]

NARRATIVE: CASE EVENT DATE: 20180723
